FAERS Safety Report 4625643-1 (Version None)
Quarter: 2005Q1

REPORT INFORMATION
  Report Type: 
  Country: None (occurrence: None)
  Receive Date: 20050330
  Receipt Date: 20050314
  Transmission Date: 20050727
  Serious: Yes (Other)
  Sender: FDA-Public Use
  Company Number: EWC040840156

PATIENT
  Age: 74 Year
  Sex: Male

DRUGS (6)
  1. PERGOLIDE MESYLATE [Suspect]
     Indication: PARKINSON'S DISEASE
     Dosage: 6 MG DAY
     Dates: end: 20030918
  2. PROLOPA [Concomitant]
  3. SINEMET [Concomitant]
  4. ELDEPRYL [Concomitant]
  5. AMANTAN (AMANTADINE HYDROCHLORIDE) [Concomitant]
  6. PROLOPA [Concomitant]

REACTIONS (4)
  - AORTIC VALVE INCOMPETENCE [None]
  - DILATATION ATRIAL [None]
  - MITRAL VALVE INCOMPETENCE [None]
  - TRICUSPID VALVE INCOMPETENCE [None]
